FAERS Safety Report 17863612 (Version 1)
Quarter: 2020Q2

REPORT INFORMATION
  Report Type: Spontaneous
  Country: US (occurrence: US)
  Receive Date: 20200605
  Receipt Date: 20200605
  Transmission Date: 20200714
  Serious: Yes (Other)
  Sender: FDA-Public Use
  Company Number: US-ROCHE-2561964

PATIENT
  Age: 62 Year
  Sex: Male
  Weight: 69.92 kg

DRUGS (9)
  1. CYMBALTA [Concomitant]
     Active Substance: DULOXETINE HYDROCHLORIDE
     Indication: PAIN
     Route: 048
  2. LYRICA [Concomitant]
     Active Substance: PREGABALIN
     Indication: PAIN
  3. VITAMIN B12 [Concomitant]
     Active Substance: CYANOCOBALAMIN
  4. RITUXAN [Suspect]
     Active Substance: RITUXIMAB
     Indication: CHRONIC LYMPHOCYTIC LEUKAEMIA
     Dosage: HAD 6 CYCLES ONGOING : NO
     Route: 042
     Dates: start: 20190610, end: 20191010
  5. RITUXAN [Suspect]
     Active Substance: RITUXIMAB
     Dosage: ONGOING: NO
     Route: 042
     Dates: start: 20141110, end: 2015
  6. TRAMADOL. [Concomitant]
     Active Substance: TRAMADOL
  7. ALPRAZOLAM. [Concomitant]
     Active Substance: ALPRAZOLAM
     Indication: PAIN
     Route: 048
  8. MAGNESIUM [Concomitant]
     Active Substance: MAGNESIUM
  9. LYRICA [Concomitant]
     Active Substance: PREGABALIN
     Indication: NERVE INJURY
     Dosage: ONGOING: YES
     Route: 048

REACTIONS (14)
  - Swelling face [Unknown]
  - Ill-defined disorder [Unknown]
  - Acne [Not Recovered/Not Resolved]
  - Chronic lymphocytic leukaemia recurrent [Unknown]
  - Lymphadenopathy [Unknown]
  - Immune system disorder [Not Recovered/Not Resolved]
  - Headache [Recovered/Resolved]
  - Pruritus [Recovering/Resolving]
  - Skin infection [Unknown]
  - Skin disorder [Not Recovered/Not Resolved]
  - Arthropod bite [Unknown]
  - Haemorrhage [Not Recovered/Not Resolved]
  - Aggression [Unknown]
  - Skin injury [Unknown]

NARRATIVE: CASE EVENT DATE: 201906
